FAERS Safety Report 13995275 (Version 2)
Quarter: 2017Q3

REPORT INFORMATION
  Report Type: Spontaneous
  Country: IT (occurrence: IT)
  Receive Date: 20170921
  Receipt Date: 20170927
  Transmission Date: 20171128
  Serious: Yes (Hospitalization)
  Sender: FDA-Public Use
  Company Number: IT-SUN PHARMACEUTICAL INDUSTRIES LTD-2017RR-150302

PATIENT
  Age: 51 Year
  Sex: Female

DRUGS (4)
  1. QUETIAPINA SANDOZ GMBH 100 MG [Suspect]
     Active Substance: QUETIAPINE
     Indication: SELF-INJURIOUS IDEATION
     Dosage: 60 DF TOTAL
     Route: 048
     Dates: start: 20170805, end: 20170805
  2. REACTINE 5 MG + 120 MG [Suspect]
     Active Substance: CETIRIZINE HYDROCHLORIDE\PSEUDOEPHEDRINE HYDROCHLORIDE
     Indication: SELF-INJURIOUS IDEATION
     Dosage: 12 DF TOTAL
     Route: 048
     Dates: start: 20170805, end: 20170805
  3. VENLAFAXINE [Suspect]
     Active Substance: VENLAFAXINE HYDROCHLORIDE
     Indication: SELF-INJURIOUS IDEATION
     Dosage: 5 DF TOTAL
     Route: 048
     Dates: start: 20170805, end: 20170805
  4. AERIUS [Suspect]
     Active Substance: DESLORATADINE
     Indication: SELF-INJURIOUS IDEATION
     Dosage: 3 DF TOTAL
     Route: 048
     Dates: start: 20170805, end: 20170805

REACTIONS (2)
  - Drug abuse [Recovered/Resolved]
  - Coma [Recovered/Resolved]

NARRATIVE: CASE EVENT DATE: 20170805
